FAERS Safety Report 9189641 (Version 1)
Quarter: 2013Q1

REPORT INFORMATION
  Report Type: Spontaneous
  Country: US (occurrence: None)
  Receive Date: 20130322
  Receipt Date: 20130322
  Transmission Date: 20140127
  Serious: Yes (Hospitalization)
  Sender: FDA-Public Use
  Company Number: SYM-2013-01786

PATIENT
  Age: 35 Year
  Sex: Female

DRUGS (4)
  1. BUPROPION HYDROCHLORIDE [Suspect]
     Indication: DEPRESSION
     Dosage: 150 MG, BID, ORAL
     Route: 048
     Dates: start: 2009, end: 20111108
  2. BUPROPION HYDROCHLORIDE [Suspect]
     Indication: ANXIETY
     Dosage: 150 MG, BID, ORAL
     Route: 048
     Dates: start: 2009, end: 20111108
  3. FLUTICASONE/SALMETEROL (FLUTICASONE W/SALMETEROL) (SALMETEROL, FLUTICASONE) [Concomitant]
  4. SALBUTAMOL SULPHATE (SALBUTAMOL SULFATE) (SALBUTAMOL SULFATE) [Concomitant]

REACTIONS (5)
  - Convulsion [None]
  - Road traffic accident [None]
  - Decreased appetite [None]
  - Weight decreased [None]
  - Major depression [None]
